FAERS Safety Report 8611960-7 (Version None)
Quarter: 2012Q3

REPORT INFORMATION
  Report Type: 
  Country: None (occurrence: None)
  Receive Date: 20120822
  Receipt Date: 20120816
  Transmission Date: 20120928
  Serious: Yes (Hospitalization, Other)
  Sender: FDA-Public Use
  Company Number: JP-JNJFOC-20120520031

PATIENT
  Sex: Male
  Weight: 71 kg

DRUGS (5)
  1. EPINASTINE HYDROCHLORIDE [Concomitant]
     Indication: PRURITUS
     Route: 048
     Dates: start: 20100701
  2. CINAL [Concomitant]
     Indication: PIGMENTATION DISORDER
     Route: 048
     Dates: start: 20100701
  3. STELARA [Suspect]
     Indication: PSORIASIS
     Route: 058
     Dates: start: 20110812
  4. OXAROL [Concomitant]
     Indication: PSORIASIS
     Route: 061
     Dates: start: 20100701
  5. DIFLORASONE DIACETATE [Concomitant]
     Indication: PSORIASIS
     Route: 061
     Dates: start: 20100701

REACTIONS (2)
  - HEPATITIS B [None]
  - HEPATIC FUNCTION ABNORMAL [None]
